FAERS Safety Report 7029685-0 (Version None)
Quarter: 2010Q4

REPORT INFORMATION
  Report Type: 
  Country: None (occurrence: None)
  Receive Date: 20101005
  Receipt Date: 20101005
  Transmission Date: 20110411
  Serious: No
  Sender: FDA-Public Use
  Company Number: None

PATIENT
  Sex: Male
  Weight: 62.8232 kg

DRUGS (1)
  1. RISPERIDONE [Suspect]
     Indication: TIC
     Dosage: 1 MG ONCE QHS ORAL
     Route: 048
     Dates: start: 20080701, end: 20080818

REACTIONS (3)
  - AGITATION [None]
  - INSOMNIA [None]
  - PRODUCT SUBSTITUTION ISSUE [None]
